FAERS Safety Report 8318716-3 (Version None)
Quarter: 2012Q2

REPORT INFORMATION
  Report Type: 
  Country: None (occurrence: None)
  Receive Date: 20120427
  Receipt Date: 20120417
  Transmission Date: 20120825
  Serious: Yes (Hospitalization)
  Sender: FDA-Public Use
  Company Number: US-JNJFOC-20120408977

PATIENT
  Sex: Male

DRUGS (3)
  1. REMICADE [Suspect]
     Route: 042
     Dates: start: 20070901
  2. REMICADE [Suspect]
     Indication: INFLAMMATORY BOWEL DISEASE
     Route: 042
     Dates: start: 20111207
  3. ACYCLOVIR [Concomitant]
     Dosage: DOSE 1-3 TABLETS (FREQUENCY NOT PROVIDED)
     Route: 048

REACTIONS (1)
  - INTESTINAL OBSTRUCTION [None]
